FAERS Safety Report 5009956-X (Version None)
Quarter: 2006Q2

REPORT INFORMATION
  Report Type: 
  Country: None (occurrence: None)
  Receive Date: 20060522
  Receipt Date: 20060509
  Transmission Date: 20061013
  Serious: Yes (Hospitalization)
  Sender: FDA-Public Use
  Company Number: CIP06001040

PATIENT
  Age: 50 Year
  Sex: Female

DRUGS (1)
  1. ACTONEL [Suspect]
     Indication: OSTEOPOROSIS
     Dosage: ONCE WEEKLY, ORAL
     Route: 048
     Dates: start: 20030401

REACTIONS (7)
  - IMPAIRED HEALING [None]
  - INFLAMMATION [None]
  - NEISSERIA INFECTION [None]
  - OSTEONECROSIS [None]
  - SECRETION DISCHARGE [None]
  - STREPTOCOCCAL INFECTION [None]
  - TOOTH EXTRACTION [None]
